FAERS Safety Report 8055885-7 (Version None)
Quarter: 2012Q1

REPORT INFORMATION
  Report Type: 
  Country: None (occurrence: None)
  Receive Date: 20120119
  Receipt Date: 20120113
  Transmission Date: 20120608
  Serious: Yes (Congenital Anomaly, Other)
  Sender: FDA-Public Use
  Company Number: DE-ROCHE-1030800

PATIENT
  Age: 30 Year

DRUGS (4)
  1. HERCEPTIN [Suspect]
     Indication: PRODUCT USED FOR UNKNOWN INDICATION
  2. BEVACIZUMAB [Concomitant]
  3. CAPECITABINE [Concomitant]
  4. LAPATINIB [Concomitant]

REACTIONS (1)
  - SURGERY [None]
